FAERS Safety Report 10452407 (Version 1)
Quarter: 2014Q3

REPORT INFORMATION
  Report Type: Spontaneous
  Country: GB (occurrence: GB)
  Receive Date: 20140915
  Receipt Date: 20140915
  Transmission Date: 20150326
  Serious: Yes (Other)
  Sender: FDA-Public Use
  Company Number: GB-JNJFOC-20140905791

PATIENT
  Age: 38 Year
  Sex: Male
  Weight: 78 kg

DRUGS (20)
  1. SALBUTAMOL [Concomitant]
     Active Substance: ALBUTEROL
     Indication: ASTHMA
     Dosage: DOSE (NO.) 100 UNSPECIFIED UNITS; 2 TO 4 DOSES PM [SIC]; INTERVAL: AS REQUIRED.
     Route: 055
  2. GAVISCON [Concomitant]
     Active Substance: ALUMINUM HYDROXIDE\MAGNESIUM CARBONATE
     Indication: GASTROOESOPHAGEAL REFLUX DISEASE
     Dosage: 10 ML UPTO 3 TIMES DURING THE DAY AND 20 ML AT NIGHT
     Route: 065
  3. LACTULOSE. [Concomitant]
     Active Substance: LACTULOSE
     Indication: IRRITABLE BOWEL SYNDROME
     Dosage: 10 TO 15 ML AS REQUIRED
     Route: 065
  4. TOPIRAMATE. [Suspect]
     Active Substance: TOPIRAMATE
     Indication: MIGRAINE
     Dosage: 2 X 25 MG
     Route: 048
     Dates: start: 201307, end: 201405
  5. ZOLEDRONIC ACID [Concomitant]
     Active Substance: ZOLEDRONIC ACID
     Indication: OSTEOPOROSIS
     Dosage: DOSE (NO.) 1 UNSPECIFIED UNITS.
     Route: 041
     Dates: start: 20130122
  6. CALCIUM CARBONATE W/COLECALCIFEROL [Concomitant]
     Active Substance: CALCIUM CARBONATE\CHOLECALCIFEROL
     Indication: OSTEOPOROSIS
     Dosage: DOSE (NO.) 2 UNSPECIFIED UNITS; 750/200 MG CAPLETS.
     Route: 048
  7. PARACETAMOL [Concomitant]
     Active Substance: ACETAMINOPHEN
     Indication: MIGRAINE
     Dosage: DOSE (NO.) 500 UNSPECIFIED UNITS; 2 TABLETS TO BE TAKEN AS REQUIRED FOUR TO SIX HOURLY.
     Route: 048
  8. MEBEVERINE [Concomitant]
     Active Substance: MEBEVERINE
     Indication: IRRITABLE BOWEL SYNDROME
     Dosage: DOSE (NO.) 135 UNSPECIFIED UNITS.
     Route: 048
  9. CETIRIZINE [Concomitant]
     Active Substance: CETIRIZINE HYDROCHLORIDE
     Indication: SEASONAL ALLERGY
     Dosage: DOSE (NO.) 10 UNSPECIFIED UNITS.
     Route: 048
  10. INTAL [Concomitant]
     Active Substance: CROMOLYN SODIUM
     Indication: ASTHMA
     Dosage: DOSE (NO.) 1 UNSPECIFIED UNITS; 1 DROP PER EYE UP TO 4 TIMES DAILY AS REQUIRED.
     Route: 047
  11. SALMETEROL XINAFOATE [Concomitant]
     Active Substance: SALMETEROL XINAFOATE
     Indication: ASTHMA
     Dosage: DOSE (NO.) 2 UNSPECIFIED UNITS; CAN TAKE UP TO 4 DOSES TWICE A DAY.
     Route: 055
  12. IPRATROPIUM BROMIDE. [Concomitant]
     Active Substance: IPRATROPIUM BROMIDE
     Indication: ASTHMA
     Dosage: DOSE (NO.) 2 UNSPECIFIED UNITS; CAN INCREASE TO 2 DOSES FOUR TIMES A DAY.
     Route: 055
  13. ESOMEPRAZOLE [Concomitant]
     Active Substance: ESOMEPRAZOLE
     Indication: GASTROOESOPHAGEAL REFLUX DISEASE
     Dosage: DOSE (NO.) 20 UNSPECIFIED UNITS; GASTRO-RESISTANT.
     Route: 048
  14. LOPERAMIDE [Concomitant]
     Active Substance: LOPERAMIDE
     Indication: IRRITABLE BOWEL SYNDROME
     Dosage: DOSE (NO.) 2 UNSPECIFIED UNITS; 1 OR 2 TABLETS AS REQUIRED, NO MORE THAN 8 IN 24 HOURS.
     Route: 048
  15. MONTELUKAST [Concomitant]
     Active Substance: MONTELUKAST SODIUM
     Indication: ASTHMA
     Dosage: DOSE (NO.) 10 UNSPECIFIED UNITS; AT NIGHT.
     Route: 048
  16. FLUTICASONE [Concomitant]
     Active Substance: FLUTICASONE\FLUTICASONE PROPIONATE
     Indication: ASTHMA
     Dosage: DOSE (NO.) 2 UNSPECIFIED UNITS; CAN TAKE UP TO 4 DOSES TWICE A DAY.
     Route: 065
  17. AVAMYS [Concomitant]
     Active Substance: FLUTICASONE FUROATE
     Indication: SEASONAL ALLERGY
     Dosage: DOSE (NO.) 2 UNSPECIFIED UNITS.
     Route: 065
  18. VENTOLIN [Concomitant]
     Active Substance: ALBUTEROL SULFATE
     Indication: ASTHMA
     Dosage: DOSE (NO.) 2.5 UNSPECIFIED UNITS; UPTO 4 TIMES PER DAY THROUGH NEBULISER
     Route: 055
  19. CLOTRIMAZOLE. [Concomitant]
     Active Substance: CLOTRIMAZOLE
     Indication: ECZEMA
     Dosage: DOSE (NO.) 2 UNSPECIFIED UNITS; APPLIED TO KNE AND LEG TWICE A DAY
     Route: 061
  20. DOMPERIDONE [Concomitant]
     Active Substance: DOMPERIDONE
     Indication: GASTROOESOPHAGEAL REFLUX DISEASE
     Dosage: DOSE (NO.) 10 UNSPECIFIED UNITS; 1 TABLET IN THE MORNING AND 2 TABLETS AT NIGHT.
     Route: 048

REACTIONS (6)
  - Blister rupture [Recovered/Resolved]
  - Paraesthesia [Not Recovered/Not Resolved]
  - Blister [Recovered/Resolved]
  - Wound secretion [Recovered/Resolved]
  - Hypoaesthesia [Not Recovered/Not Resolved]
  - Pain [Recovered/Resolved]
